FAERS Safety Report 14369341 (Version 1)
Quarter: 2018Q1

REPORT INFORMATION
  Report Type: Spontaneous
  Country: CN (occurrence: CN)
  Receive Date: 20180109
  Receipt Date: 20180109
  Transmission Date: 20180509
  Serious: Yes (Other)
  Sender: FDA-Public Use
  Company Number: CN-BAXTER-2018BAX000490

PATIENT
  Age: 22 Year
  Sex: Female
  Weight: 98 kg

DRUGS (4)
  1. DEXAMETHASONE. [Suspect]
     Active Substance: DEXAMETHASONE
     Indication: HYPERSENSITIVITY
     Dosage: IMMEDIATELY GIVEN FOR SYMPTOMATIC TREATMENT
     Route: 030
     Dates: start: 20171109
  2. METRONIDAZOLE AND SODIUM CHLORIDE INJECTION [Suspect]
     Active Substance: METRONIDAZOLE\SODIUM CHLORIDE
     Indication: VAGINAL INFECTION
     Route: 041
     Dates: start: 20171108, end: 20171109
  3. METHYLPREDNISOLONE. [Suspect]
     Active Substance: METHYLPREDNISOLONE
     Indication: HYPERSENSITIVITY
     Route: 065
     Dates: start: 20171109
  4. XINLIXIN [Suspect]
     Active Substance: CEFUROXIME SODIUM
     Indication: UPPER RESPIRATORY TRACT INFECTION
     Route: 041
     Dates: start: 20171108, end: 20171110

REACTIONS (2)
  - Hypersensitivity [Recovering/Resolving]
  - Exposure during pregnancy [Not Recovered/Not Resolved]

NARRATIVE: CASE EVENT DATE: 20171109
